FAERS Safety Report 22852514 (Version 3)
Quarter: 2023Q4

REPORT INFORMATION
  Report Type: Spontaneous
  Country: GB (occurrence: GB)
  Receive Date: 20230823
  Receipt Date: 20231108
  Transmission Date: 20240109
  Serious: Yes (Death, Hospitalization)
  Sender: FDA-Public Use
  Company Number: GB-NOVOPROD-1103708

PATIENT

DRUGS (1)
  1. GLUCAGEN HYPOKIT [Suspect]
     Active Substance: GLUCAGON HYDROCHLORIDE
     Indication: Hypoglycaemia
     Dosage: UNK

REACTIONS (4)
  - Pulmonary embolism [Fatal]
  - Cardiac arrest [Fatal]
  - Hypoglycaemia [Fatal]
  - Device defective [Fatal]

NARRATIVE: CASE EVENT DATE: 20230810
